FAERS Safety Report 6558201-2 (Version None)
Quarter: 2010Q1

REPORT INFORMATION
  Report Type: 
  Country: None (occurrence: None)
  Receive Date: 20100127
  Receipt Date: 20100127
  Transmission Date: 20100710
  Serious: Yes (Hospitalization)
  Sender: FDA-Public Use
  Company Number: None

PATIENT
  Age: 89 Year
  Sex: Male
  Weight: 84 kg

DRUGS (6)
  1. PHENYTOIN [Suspect]
     Indication: CONVULSION
     Dosage: 300 MG DAILY PO, CHRONIC
  2. OMEPRAZOLE [Suspect]
     Dosage: ???, RECENT
  3. FUROSEMIDE [Concomitant]
  4. MELOXICAN [Concomitant]
  5. METHOTREXATE [Concomitant]
  6. OMEPRAZOLE [Concomitant]

REACTIONS (6)
  - ASTHENIA [None]
  - ATAXIA [None]
  - DIZZINESS [None]
  - DRUG TOXICITY [None]
  - DYSSTASIA [None]
  - HYPERKALAEMIA [None]
